FAERS Safety Report 21517879 (Version 2)
Quarter: 2025Q1

REPORT INFORMATION
  Report Type: Spontaneous
  Country: CN (occurrence: CN)
  Receive Date: 20221028
  Receipt Date: 20250329
  Transmission Date: 20250409
  Serious: Yes (Other)
  Sender: ROCHE
  Company Number: CN-ROCHE-3205865

PATIENT
  Age: 65 Year
  Sex: Male

DRUGS (15)
  1. MYCOPHENOLATE MOFETIL [Suspect]
     Active Substance: MYCOPHENOLATE MOFETIL
     Indication: Renal cancer
     Route: 065
     Dates: start: 20220103
  2. AXITINIB [Concomitant]
     Active Substance: AXITINIB
     Indication: Renal cancer
  3. SUNITINIB [Concomitant]
     Active Substance: SUNITINIB
     Indication: Renal cancer
  4. METHYLPREDNISOLONE [Concomitant]
     Active Substance: METHYLPREDNISOLONE
     Indication: Product used for unknown indication
     Dates: start: 20220102, end: 20220105
  5. METHYLPREDNISOLONE [Concomitant]
     Active Substance: METHYLPREDNISOLONE
     Dates: start: 20220106
  6. METHYLPREDNISOLONE [Concomitant]
     Active Substance: METHYLPREDNISOLONE
     Dates: start: 20220107, end: 20220114
  7. HUMAN IMMUNOGLOBULIN G [Concomitant]
     Active Substance: HUMAN IMMUNOGLOBULIN G
     Indication: Product used for unknown indication
     Dates: start: 20220106, end: 20220107
  8. HUMAN IMMUNOGLOBULIN G [Concomitant]
     Active Substance: HUMAN IMMUNOGLOBULIN G
  9. VINCRISTINE [Concomitant]
     Active Substance: VINCRISTINE
     Indication: Renal cancer
     Dates: start: 20220103
  10. PLATELETS [Concomitant]
     Active Substance: HUMAN PLATELET, ALLOGENIC
     Indication: Product used for unknown indication
  11. HUMAN GRANULOCYTE STIMULATING FACTOR (UNK INGREDIENTS) [Concomitant]
     Indication: Product used for unknown indication
     Dates: start: 20220111, end: 20220113
  12. RECOMBINANT HUMAN INTERLEUKIN 11 (I) [Concomitant]
     Indication: Product used for unknown indication
     Dates: start: 20220103, end: 20220113
  13. RECOMBINANT HUMAN THROMBOPOIETIN [Concomitant]
     Active Substance: RECOMBINANT HUMAN THROMBOPOIETIN
     Indication: Product used for unknown indication
     Dates: start: 20220103, end: 20220113
  14. HETROMBOPAG OLAMINE [Concomitant]
     Active Substance: HETROMBOPAG OLAMINE
     Indication: Product used for unknown indication
     Dates: start: 20220108, end: 20220111
  15. HETROMBOPAG OLAMINE [Concomitant]
     Active Substance: HETROMBOPAG OLAMINE
     Dates: start: 20220112, end: 20220113

REACTIONS (4)
  - Myelosuppression [Unknown]
  - Renal injury [Unknown]
  - Immune-mediated myocarditis [Unknown]
  - Off label use [Unknown]
